FAERS Safety Report 8048050-0 (Version None)
Quarter: 2012Q1

REPORT INFORMATION
  Report Type: 
  Country: None (occurrence: None)
  Receive Date: 20120117
  Receipt Date: 20120109
  Transmission Date: 20120608
  Serious: Yes (Hospitalization, Other)
  Sender: FDA-Public Use
  Company Number: US-BIOGENIDEC-2012BI001024

PATIENT
  Age: 68 Year
  Sex: Female

DRUGS (2)
  1. AVONEX [Suspect]
     Route: 030
     Dates: start: 20030101
  2. AVONEX [Suspect]
     Indication: MULTIPLE SCLEROSIS
     Route: 030
     Dates: start: 19990301, end: 20030101

REACTIONS (5)
  - HYPOTENSION [None]
  - CARDIAC FAILURE CONGESTIVE [None]
  - NEPHROLITHIASIS [None]
  - SEPSIS [None]
  - FEELING ABNORMAL [None]
